FAERS Safety Report 7704980-8 (Version None)
Quarter: 2011Q3

REPORT INFORMATION
  Report Type: 
  Country: None (occurrence: None)
  Receive Date: 20110823
  Receipt Date: 20110822
  Transmission Date: 20111222
  Serious: No
  Sender: FDA-Public Use
  Company Number: US-PFIZER INC-2011194079

PATIENT
  Sex: Male

DRUGS (1)
  1. LYRICA [Suspect]
     Dosage: 50MG UNKNOWN FREQUENCY

REACTIONS (3)
  - LIP INJURY [None]
  - FEELING ABNORMAL [None]
  - DYSGEUSIA [None]
